FAERS Safety Report 8999974 (Version 1)
Quarter: 2013Q1

REPORT INFORMATION
  Report Type: Spontaneous
  Country: US (occurrence: US)
  Receive Date: 20130102
  Receipt Date: 20130102
  Transmission Date: 20140127
  Serious: No
  Sender: FDA-Public Use
  Company Number: US-FOUGERA-2012FO001233

PATIENT
  Sex: Male

DRUGS (1)
  1. ECONAZOLE NITRATE [Suspect]
     Indication: LIMB INJURY
     Route: 061
     Dates: start: 201207, end: 201207

REACTIONS (5)
  - Application site swelling [Recovered/Resolved]
  - Application site hypersensitivity [Unknown]
  - Application site pain [Unknown]
  - Wrong drug administered [Recovered/Resolved]
  - Application site erythema [Recovered/Resolved]
